FAERS Safety Report 23015380 (Version 1)
Quarter: 2023Q4

REPORT INFORMATION
  Report Type: Spontaneous
  Country: US (occurrence: US)
  Receive Date: 20231002
  Receipt Date: 20231002
  Transmission Date: 20240109
  Serious: Yes (Other)
  Sender: FDA-Public Use
  Company Number: US-AMGEN-USASP2023172817

PATIENT
  Sex: Male

DRUGS (5)
  1. XGEVA [Suspect]
     Active Substance: DENOSUMAB
     Indication: Breast cancer metastatic
     Dosage: UNK
     Route: 065
     Dates: start: 2022
  2. IBRANCE [Concomitant]
     Active Substance: PALBOCICLIB
     Route: 065
  3. FULVESTRANT [Concomitant]
     Active Substance: FULVESTRANT
     Route: 065
  4. PIQRAY [Concomitant]
     Active Substance: ALPELISIB
     Route: 065
  5. TAXOL [Concomitant]
     Active Substance: PACLITAXEL
     Dosage: 150 MILLIGRAM, 1 HR. 3 WKS ON AND 1 OFF
     Route: 065

REACTIONS (1)
  - Breast cancer metastatic [Unknown]
